FAERS Safety Report 6186612-6 (Version None)
Quarter: 2009Q2

REPORT INFORMATION
  Report Type: 
  Country: None (occurrence: None)
  Receive Date: 20090507
  Receipt Date: 20090507
  Transmission Date: 20091009
  Serious: Yes (Disabling)
  Sender: FDA-Public Use
  Company Number: None

PATIENT
  Sex: Female
  Weight: 48.0813 kg

DRUGS (6)
  1. CIPROFLOXACIN [Suspect]
     Indication: URINARY TRACT INFECTION
     Dosage: 250 MG BID ORAL 047
     Route: 048
     Dates: start: 20090410, end: 20090413
  2. PROVIGIL [Concomitant]
  3. PROTONIX [Concomitant]
  4. ANAGRELIDE HCL [Concomitant]
  5. ATENOLOL [Concomitant]
  6. HYDROCHLOROTHIAZIDE [Concomitant]

REACTIONS (8)
  - ABASIA [None]
  - DIARRHOEA [None]
  - FATIGUE [None]
  - HYPERSOMNIA [None]
  - PAIN IN EXTREMITY [None]
  - THINKING ABNORMAL [None]
  - VOMITING [None]
  - WALKING AID USER [None]
